FAERS Safety Report 8036230-X (Version None)
Quarter: 2012Q1

REPORT INFORMATION
  Report Type: 
  Country: None (occurrence: None)
  Receive Date: 20120111
  Receipt Date: 20120103
  Transmission Date: 20120608
  Serious: Yes (Hospitalization)
  Sender: FDA-Public Use
  Company Number: PHHY2011NL109415

PATIENT
  Sex: Male
  Weight: 88 kg

DRUGS (9)
  1. ASCAL [Concomitant]
  2. PROCORALAN [Concomitant]
     Dosage: 0.5  1DD
  3. TOLBUTAMIDE [Concomitant]
     Dosage: 50 MG, 2DD1
  4. TOBI [Suspect]
     Indication: SERRATIA INFECTION
     Dosage: 28 MG, UNK
     Dates: start: 20111109, end: 20111202
  5. METFORMIN HCL [Concomitant]
     Dosage: 500 MG, 2DD2
  6. SPIRIVA [Suspect]
     Dosage: 18 MG, 1DD1
  7. FOSTER [Concomitant]
     Dosage: 100/6 2DD2
  8. OMEPRAZOLE [Concomitant]
     Dosage: 20 MG, 1DD1
  9. TAMSULOSIN HYDROCHLORIDE [Concomitant]

REACTIONS (2)
  - DYSPNOEA [None]
  - LUNG INFECTION [None]
